FAERS Safety Report 10075376 (Version 2)
Quarter: 2014Q2

REPORT INFORMATION
  Report Type: Spontaneous
  Country: US (occurrence: US)
  Receive Date: 20140414
  Receipt Date: 20140515
  Transmission Date: 20141212
  Serious: No
  Sender: FDA-Public Use
  Company Number: US-009507513-1403USA010844

PATIENT
  Age: 34 Year
  Sex: Female
  Weight: 55.78 kg

DRUGS (5)
  1. NUVARING [Suspect]
     Indication: CONTRACEPTION
     Dosage: 1 RING FOR 4 WEEKS
     Route: 067
     Dates: start: 200806
  2. NUVARING [Suspect]
     Dosage: 1 RING FOR 3 WEEKS
     Route: 067
  3. ZYRTEC [Concomitant]
  4. XANAX [Concomitant]
  5. ASTELIN (AZELASTINE HYDROCHLORIDE) [Concomitant]

REACTIONS (7)
  - Incorrect drug administration duration [Unknown]
  - Drug prescribing error [Unknown]
  - Chlamydia test positive [Recovered/Resolved]
  - Inappropriate schedule of drug administration [Unknown]
  - Menorrhagia [Unknown]
  - Vulvovaginal pruritus [Unknown]
  - Vaginal discharge [Unknown]
